FAERS Safety Report 17771833 (Version 1)
Quarter: 2020Q2

REPORT INFORMATION
  Report Type: Spontaneous
  Country: US (occurrence: US)
  Receive Date: 20200512
  Receipt Date: 20200512
  Transmission Date: 20200714
  Serious: Yes (Hospitalization)
  Sender: FDA-Public Use
  Company Number: US-FARMAPROD-202005-0632

PATIENT
  Age: 29 Year
  Sex: Female

DRUGS (1)
  1. OXERVATE [Suspect]
     Active Substance: CENEGERMIN-BKBJ
     Indication: NEUROTROPHIC KERATOPATHY
     Route: 047
     Dates: start: 20200407

REACTIONS (3)
  - Product dose omission [Unknown]
  - Impaired gastric emptying [Unknown]
  - Product administration error [Unknown]

NARRATIVE: CASE EVENT DATE: 20200427
